FAERS Safety Report 4784361-X (Version None)
Quarter: 2005Q3

REPORT INFORMATION
  Report Type: 
  Country: None (occurrence: None)
  Receive Date: 20050930
  Receipt Date: 20050922
  Transmission Date: 20060218
  Serious: Yes (Other)
  Sender: FDA-Public Use
  Company Number: 2005UW14203

PATIENT
  Age: 40 Year
  Sex: Female

DRUGS (7)
  1. SEROQUEL [Suspect]
     Route: 048
  2. CITALOPRAM [Suspect]
  3. CLONAZEPAM [Suspect]
  4. WELLBUTRIN SR [Suspect]
  5. ALCOHOL [Concomitant]
  6. RANITIDINE [Concomitant]
  7. THYROID TAB [Concomitant]

REACTIONS (3)
  - HYPOTENSION [None]
  - PUPILLARY REFLEX IMPAIRED [None]
  - TACHYCARDIA [None]
